FAERS Safety Report 12495124 (Version 1)
Quarter: 2016Q2

REPORT INFORMATION
  Report Type: Spontaneous
  Country: US (occurrence: None)
  Receive Date: 20160623
  Receipt Date: 20160623
  Transmission Date: 20160815
  Serious: No
  Sender: FDA-Public Use
  Company Number: None

PATIENT
  Age: 33 Year
  Sex: Female
  Weight: 61.24 kg

DRUGS (1)
  1. AMPHETAMINE SALTS [Suspect]
     Active Substance: AMPHETAMINE ASPARTATE\AMPHETAMINE SULFATE\DEXTROAMPHETAMINE SACCHARATE\DEXTROAMPHETAMINE SULFATE

REACTIONS (8)
  - Tension headache [None]
  - Hallucination, visual [None]
  - Anxiety [None]
  - Mental impairment [None]
  - Product substitution issue [None]
  - Speech disorder [None]
  - Toothache [None]
  - Depression [None]

NARRATIVE: CASE EVENT DATE: 20160601
